FAERS Safety Report 15313070 (Version 1)
Quarter: 2018Q3

REPORT INFORMATION
  Report Type: Spontaneous
  Country: US (occurrence: US)
  Receive Date: 20180814
  Receipt Date: 20180814
  Transmission Date: 20181010
  Serious: Yes (Life-Threatening, Hospitalization, Other)
  Sender: FDA-Public Use
  Company Number: None

PATIENT
  Age: 68 Year
  Sex: Male
  Weight: 80.1 kg

DRUGS (13)
  1. METOPROLOL. [Concomitant]
     Active Substance: METOPROLOL
  2. PREZCOBIX [Concomitant]
     Active Substance: COBICISTAT\DARUNAVIR ETHANOLATE
  3. TIVICAY [Concomitant]
     Active Substance: DOLUTEGRAVIR SODIUM
  4. MAGNESIUM [Concomitant]
     Active Substance: MAGNESIUM
  5. LARGININE [Concomitant]
  6. TEBS VITAMINS [Concomitant]
  7. LEVAQUIN [Suspect]
     Active Substance: LEVOFLOXACIN
     Indication: URINARY TRACT INFECTION
     Dosage: ?          QUANTITY:1 TABLET(S);?
     Route: 048
     Dates: start: 20100930
  8. FENOFIBRATE. [Concomitant]
     Active Substance: FENOFIBRATE
  9. ZINC. [Concomitant]
     Active Substance: ZINC
  10. CLOPIDOGREL [Concomitant]
     Active Substance: CLOPIDOGREL BISULFATE
  11. ALFUZOSIN [Concomitant]
     Active Substance: ALFUZOSIN
  12. NIACIN FLUSH [Concomitant]
  13. LEVOTHYROXINE. [Concomitant]
     Active Substance: LEVOTHYROXINE

REACTIONS (3)
  - Neuropathy peripheral [None]
  - Chest discomfort [None]
  - Aortic aneurysm [None]

NARRATIVE: CASE EVENT DATE: 20160623
